FAERS Safety Report 12176880 (Version 2)
Quarter: 2016Q4

REPORT INFORMATION
  Report Type: Spontaneous
  Country: JP (occurrence: JP)
  Receive Date: 20160314
  Receipt Date: 20161111
  Transmission Date: 20170207
  Serious: Yes (Other)
  Sender: FDA-Public Use
  Company Number: JP-BAYER-2016-048321

PATIENT
  Age: 45 Year
  Sex: Female

DRUGS (1)
  1. MIRENA [Suspect]
     Active Substance: LEVONORGESTREL
     Indication: MENORRHAGIA
     Dosage: UNK
     Route: 015
     Dates: start: 20150301, end: 201504

REACTIONS (3)
  - Immune thrombocytopenic purpura [Recovering/Resolving]
  - Device expulsion [None]
  - Uterine haemorrhage [None]

NARRATIVE: CASE EVENT DATE: 201504
